FAERS Safety Report 8022005-4 (Version None)
Quarter: 2011Q4

REPORT INFORMATION
  Report Type: 
  Country: None (occurrence: None)
  Receive Date: 20111230
  Receipt Date: 20111215
  Transmission Date: 20120403
  Serious: Yes (Other)
  Sender: FDA-Public Use
  Company Number: 2011P1014521

PATIENT
  Age: 68 Year
  Sex: Male
  Weight: 99.7913 kg

DRUGS (1)
  1. SOLODYN [Suspect]
     Indication: ACNE
     Dosage: 135 MG;QD;PO
     Route: 048
     Dates: end: 20110101

REACTIONS (4)
  - PAIN [None]
  - SKIN ULCER [None]
  - BASOSQUAMOUS CARCINOMA [None]
  - FEAR [None]
